FAERS Safety Report 16830372 (Version 1)
Quarter: 2019Q3

REPORT INFORMATION
  Report Type: Spontaneous
  Country: US (occurrence: US)
  Receive Date: 20190920
  Receipt Date: 20190920
  Transmission Date: 20191005
  Serious: Yes (Hospitalization, Other)
  Sender: FDA-Public Use
  Company Number: US-HETERO-HET2019US01256

PATIENT
  Age: 61 Year
  Sex: Male

DRUGS (2)
  1. LURASIDONE [Suspect]
     Active Substance: LURASIDONE
     Indication: PRODUCT USED FOR UNKNOWN INDICATION
     Route: 065
  2. ARIPIPRAZOLE. [Suspect]
     Active Substance: ARIPIPRAZOLE
     Indication: PRODUCT USED FOR UNKNOWN INDICATION
     Dosage: UNK
     Route: 065

REACTIONS (9)
  - Normocytic anaemia [Recovered/Resolved]
  - Monocytosis [Recovered/Resolved]
  - Cough [Recovered/Resolved]
  - Drug reaction with eosinophilia and systemic symptoms [Recovered/Resolved]
  - Acute kidney injury [Recovered/Resolved]
  - Proteinuria [Recovered/Resolved]
  - Dyspnoea [Recovered/Resolved]
  - Generalised oedema [Recovered/Resolved]
  - Eosinophilia [Recovered/Resolved]
